FAERS Safety Report 4615186-3 (Version None)
Quarter: 2005Q1

REPORT INFORMATION
  Report Type: 
  Country: None (occurrence: None)
  Receive Date: 20050322
  Receipt Date: 20050119
  Transmission Date: 20050727
  Serious: Yes (Life-Threatening, Other)
  Sender: FDA-Public Use
  Company Number: GB-BRISTOL-MYERS SQUIBB COMPANY-12829222

PATIENT
  Age: 54 Year
  Sex: Female
  Weight: 59 kg

DRUGS (9)
  1. PACLITAXEL [Suspect]
     Indication: BREAST CANCER
     Route: 042
     Dates: start: 20050112, end: 20050112
  2. CYCLOPHOSPHAMIDE [Suspect]
     Indication: BREAST CANCER
     Dosage: TX START: 20-OCT-2004
     Route: 042
     Dates: start: 20041222, end: 20041222
  3. EPIRUBICIN [Suspect]
     Indication: BREAST CANCER
     Dosage: TX START: 20-OCT-2004
     Route: 042
     Dates: start: 20041222, end: 20041222
  4. DEXAMETHASONE [Concomitant]
     Indication: PROPHYLAXIS OF NAUSEA AND VOMITING
     Dosage: 3 DAYS PRIOR TO CHEMO
     Route: 042
     Dates: start: 20041020, end: 20041222
  5. DEXAMETHASONE [Concomitant]
     Dosage: 3 DAYS PRIOR TO CHEMO
     Route: 048
     Dates: start: 20041020, end: 20041222
  6. ONDANSETRON [Concomitant]
     Indication: PROPHYLAXIS OF NAUSEA AND VOMITING
     Route: 048
     Dates: start: 20041020, end: 20041222
  7. ONDANSETRON [Concomitant]
     Route: 042
     Dates: start: 20041020, end: 20041222
  8. PIRITON [Concomitant]
     Indication: PREMEDICATION
     Route: 042
     Dates: start: 20050112, end: 20050112
  9. RANITIDINE [Concomitant]
     Indication: PREMEDICATION
     Route: 042
     Dates: start: 20050112, end: 20050112

REACTIONS (1)
  - HYPERSENSITIVITY [None]
